FAERS Safety Report 8031040-1 (Version None)
Quarter: 2012Q1

REPORT INFORMATION
  Report Type: 
  Country: None (occurrence: None)
  Receive Date: 20120109
  Receipt Date: 20120104
  Transmission Date: 20120608
  Serious: No
  Sender: FDA-Public Use
  Company Number: US-PFIZER INC-2011286400

PATIENT
  Sex: Male
  Weight: 99.7 kg

DRUGS (8)
  1. SUTENT [Suspect]
     Indication: NEOPLASM MALIGNANT
     Dosage: 50 MG, 1 CAPSULE EVERY OTHER DAY
     Route: 048
  2. FENTANYL [Concomitant]
     Dosage: 25 UG/HR
  3. FERROUS SULFATE [Concomitant]
     Dosage: 325 MG, UNK
  4. CALTRATE 600 [Concomitant]
     Dosage: UNK
  5. MUCINEX [Concomitant]
     Dosage: 60-1200
  6. PRILOSEC [Concomitant]
     Dosage: 20 MG, UNK
  7. TUSSIN DM [Concomitant]
     Dosage: 60/1200
  8. HYDROMORPHONE [Concomitant]
     Dosage: 4 MG, UNK

REACTIONS (3)
  - PLATELET COUNT DECREASED [None]
  - DISEASE PROGRESSION [None]
  - NEOPLASM MALIGNANT [None]
